FAERS Safety Report 13675601 (Version 2)
Quarter: 2018Q1

REPORT INFORMATION
  Report Type: Report from Study
  Country: US (occurrence: US)
  Receive Date: 20170621
  Receipt Date: 20180215
  Transmission Date: 20180508
  Serious: Yes (Hospitalization, Disabling)
  Sender: FDA-Public Use
  Company Number: US-CELGENEUS-USA-20170604220

PATIENT
  Age: 78 Year
  Sex: Female
  Weight: 63.9 kg

DRUGS (15)
  1. GEMCITABINE [Suspect]
     Active Substance: GEMCITABINE\GEMCITABINE HYDROCHLORIDE
     Indication: PANCREATIC CARCINOMA METASTATIC
     Dosage: 1673 MILLIGRAM
     Route: 041
     Dates: start: 20150909
  2. GEMCITABINE [Suspect]
     Active Substance: GEMCITABINE\GEMCITABINE HYDROCHLORIDE
     Dosage: 1673 MILLIGRAM
     Route: 041
     Dates: end: 20151020
  3. MM-141 (ISTIRATUMAB) [Suspect]
     Active Substance: ISTIRATUMAB
     Dosage: 2.8 GRAM
     Route: 041
     Dates: start: 20151110
  4. DEXAMETHASONE. [Concomitant]
     Active Substance: DEXAMETHASONE
     Indication: PRODUCT USED FOR UNKNOWN INDICATION
     Route: 065
     Dates: start: 20150511
  5. LOPERAMIDE HYDROCHLORIDE. [Concomitant]
     Active Substance: LOPERAMIDE HYDROCHLORIDE
     Indication: CLOSTRIDIUM DIFFICILE INFECTION
     Route: 065
  6. ALENDRONATE SODIUM. [Concomitant]
     Active Substance: ALENDRONATE SODIUM
     Indication: PRODUCT USED FOR UNKNOWN INDICATION
     Route: 065
     Dates: start: 20150928
  7. CYPROHEPTADINE HYDROCHLORIDE. [Concomitant]
     Active Substance: CYPROHEPTADINE HYDROCHLORIDE
     Indication: PRODUCT USED FOR UNKNOWN INDICATION
     Route: 065
     Dates: start: 20151105
  8. ABRAXANE [Suspect]
     Active Substance: PACLITAXEL
     Dosage: 210 MILLIGRAM
     Route: 041
     Dates: end: 20151020
  9. MM-141 (ISTIRATUMAB) [Suspect]
     Active Substance: ISTIRATUMAB
     Indication: PANCREATIC CARCINOMA METASTATIC
     Dosage: 2.8 GRAM
     Route: 041
     Dates: start: 20150909
  10. MM-141 (ISTIRATUMAB) [Suspect]
     Active Substance: ISTIRATUMAB
     Dosage: 2.8 GRAM
     Route: 041
     Dates: end: 20151020
  11. TRAMADOL HYDROCHLORIDE. [Concomitant]
     Active Substance: TRAMADOL HYDROCHLORIDE
     Indication: PRODUCT USED FOR UNKNOWN INDICATION
     Route: 065
     Dates: start: 20150511
  12. ABRAXANE [Suspect]
     Active Substance: PACLITAXEL
     Indication: PANCREATIC CARCINOMA METASTATIC
     Dosage: 210 MILLIGRAM
     Route: 041
     Dates: start: 20150909
  13. ABRAXANE [Suspect]
     Active Substance: PACLITAXEL
     Dosage: 210 MILLIGRAM
     Route: 041
     Dates: start: 20151110
  14. GEMCITABINE [Suspect]
     Active Substance: GEMCITABINE\GEMCITABINE HYDROCHLORIDE
     Dosage: 1673 MILLIGRAM
     Route: 041
     Dates: start: 20151110
  15. RAMIPRIL. [Concomitant]
     Active Substance: RAMIPRIL
     Indication: PRODUCT USED FOR UNKNOWN INDICATION
     Route: 065
     Dates: start: 20151019

REACTIONS (4)
  - Asthenia [Recovered/Resolved]
  - Asthenia [Recovered/Resolved]
  - Fall [Recovering/Resolving]
  - Hyperglycaemia [Recovered/Resolved]

NARRATIVE: CASE EVENT DATE: 20151022
